FAERS Safety Report 7529755-4 (Version None)
Quarter: 2011Q2

REPORT INFORMATION
  Report Type: 
  Country: None (occurrence: None)
  Receive Date: 20110531
  Receipt Date: 20110523
  Transmission Date: 20111010
  Serious: Yes (Other)
  Sender: FDA-Public Use
  Company Number: A0914354A

PATIENT
  Age: 53 Year
  Sex: Female

DRUGS (1)
  1. ASPIRIN + CAFFEINE + PARACETAMOL (FORMULATION UNKNOWN) (ACETAMINOPHEN [Suspect]

REACTIONS (6)
  - DEPENDENCE [None]
  - DRUG EXPOSURE DURING PREGNANCY [None]
  - TOOTH EROSION [None]
  - GASTRITIS EROSIVE [None]
  - PREGNANCY [None]
  - PRODUCT QUALITY ISSUE [None]
